FAERS Safety Report 22127026 (Version 1)
Quarter: 2023Q1

REPORT INFORMATION
  Report Type: Spontaneous
  Country: US (occurrence: US)
  Receive Date: 20230322
  Receipt Date: 20230322
  Transmission Date: 20230418
  Serious: No
  Sender: FDA-Public Use
  Company Number: US-ALLERGAN-2302453US

PATIENT
  Sex: Female

DRUGS (1)
  1. PREDNISOLONE ACETATE [Suspect]
     Active Substance: PREDNISOLONE ACETATE
     Indication: Retinitis
     Dosage: UNK
     Route: 047

REACTIONS (5)
  - Sensory disturbance [Unknown]
  - Eye disorder [Unknown]
  - Product quality issue [Unknown]
  - Poor quality product administered [Unknown]
  - Off label use [Unknown]
